FAERS Safety Report 8991096 (Version 1)
Quarter: 2012Q4

REPORT INFORMATION
  Report Type: Spontaneous
  Country: US (occurrence: None)
  Receive Date: 20121220
  Receipt Date: 20121220
  Transmission Date: 20130627
  Serious: Yes (Death)
  Sender: FDA-Public Use
  Company Number: JPI-P-027126

PATIENT
  Age: 44 Year
  Sex: Male

DRUGS (3)
  1. XYREM (500 MILLIGRAM/MILLILITERS, SOLUTION) (SODIUM OXYBATE) [Suspect]
     Indication: INSOMNIA
     Dosage: 4.5 gm (2.25 gm, 2 in 1 D), Oral
     Route: 048
     Dates: start: 20090911
  2. XYREM (500 MILLIGRAM/MILLILITERS, SOLUTION) (SODIUM OXYBATE) [Suspect]
     Indication: INSOMNIA
     Dosage: (TITRATING DOSE), Oral
     Route: 048
  3. XYREM (500 MILLIGRAM/MILLILITERS, SOLUTION) (SODIUM OXYBATE) [Suspect]
     Indication: INSOMNIA
     Dosage: 9 gm (4.5 gm, 2 in 1 D), Oral
     Route: 048
     Dates: start: 20121025

REACTIONS (1)
  - Death [None]
